FAERS Safety Report 13333163 (Version 1)
Quarter: 2017Q1

REPORT INFORMATION
  Report Type: Spontaneous
  Country: US (occurrence: US)
  Receive Date: 20170314
  Receipt Date: 20170314
  Transmission Date: 20170428
  Serious: No
  Sender: FDA-Public Use
  Company Number: US-GLAXOSMITHKLINE-US2017032954

PATIENT
  Sex: Female

DRUGS (9)
  1. LIPITOR [Concomitant]
     Active Substance: ATORVASTATIN CALCIUM
  2. ANORO ELLIPTA [Suspect]
     Active Substance: UMECLIDINIUM BROMIDE\VILANTEROL TRIFENATATE
     Indication: MYCOBACTERIUM TEST POSITIVE
     Dosage: 1 PUFF(S), QD
     Route: 055
     Dates: start: 20170303
  3. LISINOPRIL. [Concomitant]
     Active Substance: LISINOPRIL
  4. VITAMIN D3 [Concomitant]
     Active Substance: CHOLECALCIFEROL
  5. ANORO ELLIPTA [Suspect]
     Active Substance: UMECLIDINIUM BROMIDE\VILANTEROL TRIFENATATE
     Indication: LUNG INFECTION
  6. RIFAMPIN. [Concomitant]
     Active Substance: RIFAMPIN
  7. ATORVASTATIN [Concomitant]
     Active Substance: ATORVASTATIN
  8. CALCIUM [Concomitant]
     Active Substance: CALCIUM
  9. ZITHROMYCIN [Concomitant]
     Active Substance: AZITHROMYCIN ANHYDROUS

REACTIONS (1)
  - Neck pain [Not Recovered/Not Resolved]
